FAERS Safety Report 25015797 (Version 1)
Quarter: 2025Q1

REPORT INFORMATION
  Report Type: Spontaneous
  Country: CN (occurrence: CN)
  Receive Date: 20250227
  Receipt Date: 20250227
  Transmission Date: 20250409
  Serious: Yes (Hospitalization, Other)
  Sender: ABBVIE
  Company Number: CN-ABBVIE-6145518

PATIENT
  Age: 57 Year
  Sex: Male
  Weight: 63 kg

DRUGS (5)
  1. VENCLEXTA [Suspect]
     Active Substance: VENETOCLAX
     Indication: Disease progression
     Dosage: 400 MILLIGRAM
     Route: 048
     Dates: start: 20241213, end: 20250108
  2. VENCLEXTA [Suspect]
     Active Substance: VENETOCLAX
     Indication: Disease progression
     Dosage: 200 MILLIGRAM
     Route: 048
     Dates: start: 20241212, end: 20241212
  3. VENCLEXTA [Suspect]
     Active Substance: VENETOCLAX
     Indication: Disease progression
     Dosage: 100 MILLIGRAM
     Route: 048
     Dates: start: 20241211, end: 20241211
  4. AZACITIDINE [Suspect]
     Active Substance: AZACITIDINE
     Indication: Neoplasm progression
     Dosage: 130 MILLIGRAM?INJECTION
     Route: 058
     Dates: start: 20241211, end: 20250107
  5. UBENIMEX [Concomitant]
     Active Substance: UBENIMEX
     Indication: Immune enhancement therapy

REACTIONS (1)
  - Myelosuppression [Unknown]

NARRATIVE: CASE EVENT DATE: 20241225
